FAERS Safety Report 16252832 (Version 1)
Quarter: 2019Q2

REPORT INFORMATION
  Report Type: Report from Study
  Country: US (occurrence: US)
  Receive Date: 20190429
  Receipt Date: 20190429
  Transmission Date: 20190711
  Serious: Yes (Death, Hospitalization)
  Sender: FDA-Public Use
  Company Number: US-ACTELION-A-US2019-189525

PATIENT
  Age: 71 Year
  Sex: Male

DRUGS (1)
  1. VELETRI [Suspect]
     Active Substance: EPOPROSTENOL
     Indication: PULMONARY ARTERIAL HYPERTENSION
     Dosage: 46 NG/KG, PER MIN
     Route: 042
     Dates: start: 20190415, end: 20190418

REACTIONS (3)
  - Pulmonary oedema [Not Recovered/Not Resolved]
  - Dialysis [Unknown]
  - Death [Fatal]

NARRATIVE: CASE EVENT DATE: 201904
